FAERS Safety Report 9200803 (Version 3)
Quarter: 2015Q3

REPORT INFORMATION
  Report Type: Spontaneous
  Country: US (occurrence: US)
  Receive Date: 20130401
  Receipt Date: 20150916
  Transmission Date: 20151125
  Serious: Yes (Hospitalization, Other)
  Sender: FDA-Public Use
  Company Number: US-BAYER-2013-038311

PATIENT
  Age: 30 Year
  Sex: Female
  Weight: 95.24 kg

DRUGS (3)
  1. VIBRAMYCIN [Concomitant]
     Active Substance: DOXYCYCLINE
  2. MIRENA [Suspect]
     Active Substance: LEVONORGESTREL
     Indication: CONTRACEPTION
     Dosage: 20 MCG/24HR, CONT
     Route: 015
     Dates: start: 20080319, end: 20110507
  3. ROCEPHIN [Concomitant]
     Active Substance: CEFTRIAXONE SODIUM

REACTIONS (8)
  - Abdominal pain [None]
  - Injury [None]
  - Emotional distress [None]
  - Infection [None]
  - Uterine perforation [None]
  - Pelvic inflammatory disease [None]
  - Pain [None]
  - Device dislocation [None]
